FAERS Safety Report 12228284 (Version 1)
Quarter: 2016Q1

REPORT INFORMATION
  Report Type: Spontaneous
  Country: US (occurrence: None)
  Receive Date: 20160330
  Receipt Date: 20160330
  Transmission Date: 20160526
  Serious: Yes (Hospitalization)
  Sender: FDA-Public Use
  Company Number: None

PATIENT
  Age: 64 Year
  Sex: Male
  Weight: 142.6 kg

DRUGS (4)
  1. GLIPIZIDE. [Concomitant]
     Active Substance: GLIPIZIDE
  2. METFORMIN [Concomitant]
     Active Substance: METFORMIN HYDROCHLORIDE
  3. BENICAR [Concomitant]
     Active Substance: OLMESARTAN MEDOXOMIL
  4. CASODEX [Suspect]
     Active Substance: BICALUTAMIDE
     Dates: end: 20150109

REACTIONS (7)
  - Oedema peripheral [None]
  - Hypertension [None]
  - Oxygen saturation decreased [None]
  - Cardiac failure acute [None]
  - Dyspnoea [None]
  - Left ventricular dysfunction [None]
  - Mental status changes [None]

NARRATIVE: CASE EVENT DATE: 20150109
